FAERS Safety Report 6354168-0 (Version None)
Quarter: 2009Q3

REPORT INFORMATION
  Report Type: 
  Country: None (occurrence: None)
  Receive Date: 20090914
  Receipt Date: 20070508
  Transmission Date: 20100115
  Serious: Yes (Other)
  Sender: FDA-Public Use
  Company Number: US-ASTRAZENECA-2006UW26251

PATIENT
  Age: 559 Month
  Sex: Female
  Weight: 107.5 kg

DRUGS (12)
  1. SEROQUEL [Suspect]
     Indication: DEPRESSION
     Route: 048
     Dates: start: 20000401
  2. RISPERDAL [Concomitant]
     Indication: DEPRESSION
     Dates: start: 20040101
  3. ZOLOFT [Concomitant]
  4. CELEXA [Concomitant]
     Dates: start: 20000401
  5. TRAZODONE [Concomitant]
     Dosage: 150 MG Q PM
     Dates: start: 20010101
  6. KLONOPIN [Concomitant]
     Indication: RESTLESS LEGS SYNDROME
     Dates: start: 20030101
  7. VALPROIC ACID [Concomitant]
     Dosage: 250 MG TWO TABLETS TWICE A DAY
     Route: 048
     Dates: start: 20050101
  8. ELAVIL [Concomitant]
     Indication: SLEEP DISORDER
     Dates: start: 20050101
  9. PROZAC [Concomitant]
     Indication: DEPRESSION
     Dates: start: 20070101
  10. SYNTHROID [Concomitant]
     Indication: GOITRE
     Dates: start: 20070101
  11. ASPIRIN [Concomitant]
     Dates: start: 20070101
  12. NEURONTIN [Concomitant]
     Indication: NEUROPATHY PERIPHERAL
     Dates: start: 20040101

REACTIONS (2)
  - DIABETES MELLITUS [None]
  - NEUROPATHY PERIPHERAL [None]
